FAERS Safety Report 4382436-0 (Version None)
Quarter: 2004Q2

REPORT INFORMATION
  Report Type: 
  Country: None (occurrence: None)
  Receive Date: 20040622
  Receipt Date: 20040603
  Transmission Date: 20050107
  Serious: Yes (Hospitalization, Other)
  Sender: FDA-Public Use
  Company Number: BE-AMGEN-US080393

PATIENT
  Sex: Female

DRUGS (3)
  1. ENBREL [Suspect]
     Indication: RHEUMATOID ARTHRITIS
     Route: 058
     Dates: start: 20020610, end: 20040310
  2. NAPROSYN [Concomitant]
     Dates: start: 19980101
  3. MEDROL [Concomitant]
     Dates: start: 19980101

REACTIONS (5)
  - CONDITION AGGRAVATED [None]
  - HYDRONEPHROSIS [None]
  - RENAL DISORDER [None]
  - URETERIC STENOSIS [None]
  - UROSEPSIS [None]
